FAERS Safety Report 8565019 (Version 2)
Quarter: 2014Q1

REPORT INFORMATION
  Report Type: Report from Study
  Country: US (occurrence: US)
  Receive Date: 20120516
  Receipt Date: 20140321
  Transmission Date: 20141002
  Serious: Yes (Hospitalization, Other)
  Sender: FDA-Public Use
  Company Number: US-ALEXION-A201200398

PATIENT
  Age: 51 Year
  Sex: Male

DRUGS (4)
  1. SOLIRIS 300MG [Suspect]
     Indication: PAROXYSMAL NOCTURNAL HAEMOGLOBINURIA
     Dosage: UNK
     Route: 042
     Dates: start: 2005
  2. SOLIRIS 300MG [Suspect]
     Dosage: 900 MG, Q2W
     Route: 042
  3. VITAMIN B12 [Concomitant]
     Dosage: UNK
  4. PAXIL [Concomitant]
     Dosage: UNK

REACTIONS (8)
  - Haematuria [Recovering/Resolving]
  - Haemoglobin decreased [Recovered/Resolved]
  - Upper respiratory tract infection [Recovering/Resolving]
  - Heart rate increased [Unknown]
  - Haemolysis [Unknown]
  - Blood bilirubin increased [Recovering/Resolving]
  - Blood lactate dehydrogenase increased [Recovered/Resolved]
  - Insomnia [Unknown]
